FAERS Safety Report 4707078-6 (Version None)
Quarter: 2005Q3

REPORT INFORMATION
  Report Type: 
  Country: None (occurrence: None)
  Receive Date: 20050706
  Receipt Date: 20050406
  Transmission Date: 20060218
  Serious: Yes (Death)
  Sender: FDA-Public Use
  Company Number: PHBS2005JP04920

PATIENT
  Age: 40 Year
  Sex: Male
  Weight: 60 kg

DRUGS (9)
  1. SANDIMMUNE [Suspect]
     Indication: CORD BLOOD TRANSPLANT THERAPY
     Dosage: 180 MG/DAY
     Route: 042
     Dates: start: 20041220
  2. METHOTREXATE [Suspect]
     Indication: CORD BLOOD TRANSPLANT THERAPY
     Dosage: 17 MG/D
     Route: 042
     Dates: start: 20041201, end: 20041201
  3. METHOTREXATE [Suspect]
     Dosage: 11 MG/D
     Route: 042
     Dates: start: 20041224, end: 20041224
  4. METHOTREXATE [Suspect]
     Dosage: 11 MG/D
     Route: 042
     Dates: start: 20041227, end: 20041227
  5. CYLOCIDE [Suspect]
     Indication: CORD BLOOD TRANSPLANT THERAPY
     Dosage: 6.8 G/D
     Dates: start: 20041216, end: 20041219
  6. VEPESID [Suspect]
     Indication: CORD BLOOD TRANSPLANT THERAPY
     Dosage: 1.6 G/D
     Dates: start: 20041216, end: 20041217
  7. HEPARIN [Suspect]
     Indication: THROMBOSIS PROPHYLAXIS
     Dosage: 800 DF/D
     Dates: start: 20041213
  8. MEROPEN [Concomitant]
     Indication: INFECTION
     Dosage: 1 G/DAY
     Route: 042
     Dates: start: 20041223
  9. NEU-UP [Concomitant]
     Indication: NEUTROPHIL COUNT DECREASED
     Dosage: 400 MG/D
     Route: 042
     Dates: start: 20041222

REACTIONS (8)
  - BLOOD PRESSURE DECREASED [None]
  - BODY TEMPERATURE INCREASED [None]
  - C-REACTIVE PROTEIN INCREASED [None]
  - DYSPNOEA [None]
  - HAEMOPTYSIS [None]
  - OXYGEN SATURATION DECREASED [None]
  - PSEUDOMONAL SEPSIS [None]
  - PULMONARY ALVEOLAR HAEMORRHAGE [None]
